FAERS Safety Report 25911301 (Version 1)
Quarter: 2025Q4

REPORT INFORMATION
  Report Type: Spontaneous
  Country: US (occurrence: US)
  Receive Date: 20251013
  Receipt Date: 20251013
  Transmission Date: 20260117
  Serious: No
  Sender: AMNEAL
  Company Number: US-AMNEAL PHARMACEUTICALS-2025-AMRX-01227

PATIENT
  Sex: Male

DRUGS (1)
  1. AZELASTINE HYDROCHLORIDE [Suspect]
     Active Substance: AZELASTINE HYDROCHLORIDE
     Indication: Product used for unknown indication
     Dosage: ONE PUFF BID IN EACH NOSTRIL TWICE DAILY.
     Route: 045

REACTIONS (3)
  - Hiccups [Recovered/Resolved]
  - Nasal congestion [Unknown]
  - Extra dose administered [Unknown]
